FAERS Safety Report 20695832 (Version 1)
Quarter: 2022Q2

REPORT INFORMATION
  Report Type: Spontaneous
  Country: US (occurrence: US)
  Receive Date: 20220411
  Receipt Date: 20220411
  Transmission Date: 20220720
  Serious: No
  Sender: FDA-Public Use
  Company Number: US-PFIZER INC-202101126619

PATIENT
  Age: 52 Year
  Sex: Female

DRUGS (7)
  1. XELJANZ [Suspect]
     Active Substance: TOFACITINIB CITRATE
     Indication: Ankylosing spondylitis
     Dosage: 5 MG, 2X/DAY
     Route: 048
  2. NABUMETONE [Concomitant]
     Active Substance: NABUMETONE
     Dosage: 500 MG
  3. TRAMADOL [Concomitant]
     Active Substance: TRAMADOL
     Dosage: 150 MG (ER)
  4. METHOTREXATE [Concomitant]
     Active Substance: METHOTREXATE
     Dosage: 2.5 MG
  5. LEXAPRO [Concomitant]
     Active Substance: ESCITALOPRAM OXALATE
     Dosage: UNK
  6. DILANTIN [Concomitant]
     Active Substance: PHENYTOIN
     Dosage: UNK
  7. ONE DAILY WOMEN^S [Concomitant]

REACTIONS (2)
  - Bronchitis [Unknown]
  - Condition aggravated [Unknown]
